FAERS Safety Report 4272932-9 (Version None)
Quarter: 2004Q1

REPORT INFORMATION
  Report Type: 
  Country: None (occurrence: None)
  Receive Date: 20040114
  Receipt Date: 20031231
  Transmission Date: 20041129
  Serious: Yes (Hospitalization)
  Sender: FDA-Public Use
  Company Number: CA-SHR-03-019223

PATIENT
  Age: 48 Year
  Sex: Male

DRUGS (2)
  1. BETAFERON (INTERFERON BETA-1B) INJECTION, 250UG [Suspect]
     Indication: MULTIPLE SCLEROSIS
     Dosage: 9 MIU, EVERY 2D, SUBCUTANEOUS
     Route: 058
     Dates: start: 20000506, end: 20031227
  2. BETAFERON (INTERFERON BETA-1B) INJECTION, 250UG [Suspect]
     Indication: MULTIPLE SCLEROSIS
     Dosage: 9 MIU, EVERY 2D, SUBCUTANEOUS
     Route: 058
     Dates: start: 20031231

REACTIONS (3)
  - BLOOD PRESSURE SYSTOLIC INCREASED [None]
  - CHOLECYSTECTOMY [None]
  - PAIN [None]
